FAERS Safety Report 9913535 (Version 1)
Quarter: 2014Q1

REPORT INFORMATION
  Report Type: Spontaneous
  Country: US (occurrence: None)
  Receive Date: 20140219
  Receipt Date: 20140219
  Transmission Date: 20141002
  Serious: Yes (Hospitalization)
  Sender: FDA-Public Use
  Company Number: None

PATIENT
  Age: 67 Year
  Sex: Female
  Weight: 112.2 kg

DRUGS (1)
  1. CISPLATIN [Suspect]

REACTIONS (8)
  - Blood alkaline phosphatase increased [None]
  - Blood magnesium decreased [None]
  - Renal failure acute [None]
  - Anaemia [None]
  - Platelet count increased [None]
  - Blood albumin decreased [None]
  - Pleural effusion [None]
  - Pelvic abscess [None]
